FAERS Safety Report 6895097-3 (Version None)
Quarter: 2010Q3

REPORT INFORMATION
  Report Type: 
  Country: None (occurrence: None)
  Receive Date: 20100708
  Receipt Date: 20091130
  Transmission Date: 20110219
  Serious: Yes (Life-Threatening, Hospitalization, Other)
  Sender: FDA-Public Use
  Company Number: 2009260554

PATIENT
  Age: 46 Year
  Sex: Male
  Weight: 72.6 kg

DRUGS (1)
  1. CHANTIX [Suspect]
     Indication: SMOKING CESSATION THERAPY
     Dosage: 1 MG, 1X/DAY, ORAL
     Route: 048
     Dates: start: 20070401, end: 20080101

REACTIONS (6)
  - ABNORMAL DREAMS [None]
  - CONSTIPATION [None]
  - DEPRESSION [None]
  - DYSGEUSIA [None]
  - MYOCARDIAL INFARCTION [None]
  - THROMBECTOMY [None]
